FAERS Safety Report 15022658 (Version 1)
Quarter: 2018Q2

REPORT INFORMATION
  Report Type: Spontaneous
  Country: GB (occurrence: GB)
  Receive Date: 20180618
  Receipt Date: 20180618
  Transmission Date: 20180711
  Serious: Yes (Other)
  Sender: FDA-Public Use
  Company Number: GB-PFIZER INC-2018240742

PATIENT
  Age: 50 Year
  Sex: Female
  Weight: 44.9 kg

DRUGS (1)
  1. SERTRALINE HCL [Suspect]
     Active Substance: SERTRALINE HYDROCHLORIDE
     Indication: ANXIETY
     Dosage: 50 MG, 1X/DAY
     Route: 048
     Dates: start: 20180423, end: 20180426

REACTIONS (13)
  - Malaise [Recovered/Resolved with Sequelae]
  - Pyrexia [Recovered/Resolved with Sequelae]
  - Feeding disorder [Recovered/Resolved with Sequelae]
  - Asthenia [Recovered/Resolved with Sequelae]
  - Insomnia [Recovered/Resolved with Sequelae]
  - Lip blister [Unknown]
  - Abdominal pain upper [Recovered/Resolved with Sequelae]
  - Chills [Recovered/Resolved with Sequelae]
  - Tongue blistering [Unknown]
  - Agitation [Recovered/Resolved with Sequelae]
  - Nausea [Recovered/Resolved with Sequelae]
  - Dizziness [Recovered/Resolved with Sequelae]
  - Burning sensation [Unknown]

NARRATIVE: CASE EVENT DATE: 20180425
